FAERS Safety Report 4814054-1 (Version None)
Quarter: 2005Q4

REPORT INFORMATION
  Report Type: 
  Country: None (occurrence: None)
  Receive Date: 20051028
  Receipt Date: 20051025
  Transmission Date: 20060501
  Serious: Yes (Death)
  Sender: FDA-Public Use
  Company Number: 2005UW16110

PATIENT
  Age: 15 Year
  Sex: Female

DRUGS (3)
  1. SEROQUEL [Suspect]
     Indication: BIPOLAR DISORDER
     Route: 048
     Dates: start: 20051020, end: 20051022
  2. SEROQUEL [Interacting]
     Route: 048
     Dates: start: 20051023
  3. WINE [Interacting]
     Route: 048
     Dates: start: 20051023

REACTIONS (4)
  - ALCOHOL INTERACTION [None]
  - COMPLETED SUICIDE [None]
  - INTENTIONAL DRUG MISUSE [None]
  - OVERDOSE [None]
